FAERS Safety Report 8371196-4 (Version None)
Quarter: 2012Q2

REPORT INFORMATION
  Report Type: 
  Country: None (occurrence: None)
  Receive Date: 20120518
  Receipt Date: 20120511
  Transmission Date: 20120825
  Serious: Yes (Hospitalization)
  Sender: FDA-Public Use
  Company Number: PHHO2012US007371

PATIENT
  Sex: Male
  Weight: 51.2 kg

DRUGS (32)
  1. BLINDED NO TREATMENT RECEIVED [Suspect]
     Indication: HEAD AND NECK CANCER
     Dosage: NO TREATMENT
  2. OXYCODONE HCL [Concomitant]
  3. NICOTINE [Concomitant]
  4. POLYETHYLENE GLYCOL [Concomitant]
  5. OXACILLIN [Suspect]
     Route: 042
  6. COMPARATOR CETUXIMAB [Suspect]
     Dosage: 500 MG, BID PO W RT/ 392.5 MG IV WEEKLY
     Route: 042
     Dates: start: 20110916, end: 20110919
  7. EUCERIN [Concomitant]
  8. DUONEB [Concomitant]
  9. COMPARATOR CETUXIMAB [Suspect]
     Indication: SQUAMOUS CELL CARCINOMA
     Dosage: 500 MG, BID PO W RT/ 392.5 MG IV WEEKLY
     Route: 042
     Dates: start: 20110901, end: 20110906
  10. LORAZEPAM [Concomitant]
  11. PROCHLORPERAZINE [Concomitant]
  12. POTASSIUM CHLORIDE [Concomitant]
  13. PLACEBO [Suspect]
     Indication: HEAD AND NECK CANCER
     Dosage: NO TREATMENT
  14. ONDANSETRON [Concomitant]
  15. TRIAMCINOLONE [Concomitant]
  16. MAGNESIUM HYDROXIDE TAB [Concomitant]
  17. AFINITOR [Suspect]
     Indication: HEAD AND NECK CANCER
     Dosage: NO TREATMENT
  18. METOPROLOL TARTRATE [Concomitant]
  19. POLYETHYLENE GLYCOL [Concomitant]
  20. FLUOROURACIL [Concomitant]
     Dosage: 950 MG, QD CIV FOR 5 DAYS W/RT
     Route: 048
     Dates: start: 20110902
  21. FLUOROURACIL [Concomitant]
     Dosage: 950 MG, QD CIV FOR 5 DAYS W/RT
     Route: 048
     Dates: start: 20110916
  22. ZOLPIDEM [Concomitant]
  23. MIRTAZAPINE [Concomitant]
  24. SENNA DOCUSATE [Concomitant]
  25. PROVENTIL [Concomitant]
  26. SYMBICORT [Concomitant]
  27. FLUCONAZOLE [Concomitant]
  28. AQUAPHOR [Concomitant]
  29. SPIRIVA [Concomitant]
  30. LIDOCAINE [Concomitant]
  31. LISINOPRIL [Concomitant]
  32. MAGNESIUM GLUCONATE [Concomitant]

REACTIONS (3)
  - ALANINE AMINOTRANSFERASE INCREASED [None]
  - DEVICE RELATED INFECTION [None]
  - ASPARTATE AMINOTRANSFERASE INCREASED [None]
